FAERS Safety Report 22636897 (Version 1)
Quarter: 2023Q2

REPORT INFORMATION
  Report Type: Spontaneous
  Country: US (occurrence: US)
  Receive Date: 20230626
  Receipt Date: 20230626
  Transmission Date: 20230721
  Serious: Yes (Life-Threatening, Hospitalization, Other)
  Sender: FDA-Public Use
  Company Number: US-Accord-362746

PATIENT
  Age: 29 Year
  Sex: Male
  Weight: 90.3 kg

DRUGS (32)
  1. OXALIPLATIN [Suspect]
     Active Substance: OXALIPLATIN
     Indication: Diffuse large B-cell lymphoma
     Dosage: 100 MILLIGRAM/SQ. METER, 1Q3W
     Route: 042
     Dates: start: 20210924
  2. EPCORITAMAB [Suspect]
     Active Substance: EPCORITAMAB
     Indication: Diffuse large B-cell lymphoma
     Dosage: PRIMING DOSE: 0.16 MILLIGRAM, SINGLE
     Route: 058
     Dates: start: 20210925, end: 20210925
  3. RITUXIMAB [Suspect]
     Active Substance: RITUXIMAB
     Indication: Diffuse large B-cell lymphoma
     Dosage: 375 MILLIGRAM/SQ. METER, 1Q3W
     Route: 042
     Dates: start: 20210924, end: 20211105
  4. DEXAMETHASONE [Suspect]
     Active Substance: DEXAMETHASONE
     Indication: Diffuse large B-cell lymphoma
     Dosage: 40 MILLIGRAM, QD
     Route: 042
     Dates: start: 20210923, end: 20210926
  5. CYTARABINE [Suspect]
     Active Substance: CYTARABINE
     Indication: Diffuse large B-cell lymphoma
     Dosage: 2000 MILLIGRAM/SQ. METER, QD
     Route: 042
     Dates: start: 20210925, end: 20210926
  6. PREDNISONE [Concomitant]
     Active Substance: PREDNISONE
     Dates: start: 20211001, end: 20211001
  7. ACYCLOVIR [Concomitant]
     Active Substance: ACYCLOVIR
     Dates: start: 20210922
  8. ALLOPURINOL [Concomitant]
     Active Substance: ALLOPURINOL
     Dates: start: 20210921, end: 20211123
  9. ACETAMINOPHEN [Concomitant]
     Active Substance: ACETAMINOPHEN
     Dates: start: 20211006
  10. ALTEPLASE [Concomitant]
     Active Substance: ALTEPLASE
     Dates: start: 20211201, end: 20211201
  11. FLUTICASONE FUROATE\VILANTEROL TRIFENATATE [Concomitant]
     Active Substance: FLUTICASONE FUROATE\VILANTEROL TRIFENATATE
     Dates: start: 20210918, end: 20220103
  12. LORATADINE [Concomitant]
     Active Substance: LORATADINE
     Dates: start: 2021, end: 20220105
  13. TRAMADOL [Concomitant]
     Active Substance: TRAMADOL
     Dates: start: 20211004
  14. IBUPROFEN [Concomitant]
     Active Substance: IBUPROFEN
  15. HYDROCORTISONE [Concomitant]
     Active Substance: HYDROCORTISONE
     Dates: start: 20220122, end: 20220125
  16. BENZOCAINE-MENTHOL [Concomitant]
     Dates: start: 20220205, end: 20220210
  17. BENZONATATE [Concomitant]
     Active Substance: BENZONATATE
     Dates: start: 20220119, end: 20220125
  18. CALCIUM GLUCONATE [Concomitant]
     Active Substance: CALCIUM GLUCONATE
     Dates: start: 20211230, end: 20211230
  19. CARMUSTINE [Concomitant]
     Active Substance: CARMUSTINE
     Dates: start: 20211215, end: 20211215
  20. CEFEPIME [Concomitant]
     Active Substance: CEFEPIME HYDROCHLORIDE
     Dates: start: 20220101, end: 20220126
  21. TYLENOL [Concomitant]
     Active Substance: ACETAMINOPHEN
     Dates: start: 20220121, end: 20220121
  22. CALCIUM [Concomitant]
     Active Substance: CALCIUM
     Dates: start: 20220203, end: 20220203
  23. FILGRASTIM [Concomitant]
     Active Substance: FILGRASTIM
     Dates: start: 20211108, end: 20211117
  24. PALONOSETRON HYDROCHLORIDE [Concomitant]
     Active Substance: PALONOSETRON HYDROCHLORIDE
     Dates: start: 20211105, end: 20211106
  25. APREPITANT [Concomitant]
     Active Substance: APREPITANT
     Dates: start: 20211215, end: 20211218
  26. EPCORITAMAB [Suspect]
     Active Substance: EPCORITAMAB
     Indication: Diffuse large B-cell lymphoma
     Dosage: INTERMEDIATE DOSE: 0.8 MILLIGRAM, SINGLE
     Route: 058
     Dates: start: 20211001, end: 20211001
  27. EPCORITAMAB [Suspect]
     Active Substance: EPCORITAMAB
     Indication: Diffuse large B-cell lymphoma
     Dosage: FULL DOSE: 48 MILLIGRAM WEEKLY
     Route: 058
     Dates: start: 20211008, end: 20211126
  28. DEXAMETHASONE [Suspect]
     Active Substance: DEXAMETHASONE
     Indication: Diffuse large B-cell lymphoma
     Dosage: 40 MILLIGRAM, QD
     Route: 042
     Dates: start: 20211015, end: 20211016
  29. DEXAMETHASONE [Suspect]
     Active Substance: DEXAMETHASONE
     Indication: Diffuse large B-cell lymphoma
     Dosage: 40 MILLIGRAM, QD
     Route: 042
     Dates: start: 20211017, end: 20211018
  30. DEXAMETHASONE [Suspect]
     Active Substance: DEXAMETHASONE
     Indication: Diffuse large B-cell lymphoma
     Dosage: 40 MILLIGRAM, QD
     Route: 042
     Dates: start: 20211105, end: 20211106
  31. CYTARABINE [Suspect]
     Active Substance: CYTARABINE
     Indication: Diffuse large B-cell lymphoma
     Dosage: 2000 MILLIGRAM/SQ. METER, QD
     Route: 042
     Dates: start: 20211015, end: 20211016
  32. CYTARABINE [Suspect]
     Active Substance: CYTARABINE
     Indication: Diffuse large B-cell lymphoma
     Dosage: 2000 MILLIGRAM/SQ. METER, QD
     Route: 042
     Dates: start: 20211105, end: 20211106

REACTIONS (4)
  - Sepsis [Recovered/Resolved]
  - Pneumonia [Recovered/Resolved]
  - Bronchopulmonary aspergillosis [Unknown]
  - Periarthritis [Unknown]

NARRATIVE: CASE EVENT DATE: 20211201
